FAERS Safety Report 25456711 (Version 1)
Quarter: 2025Q2

REPORT INFORMATION
  Report Type: Report from Study
  Country: ES (occurrence: ES)
  Receive Date: 20250619
  Receipt Date: 20250619
  Transmission Date: 20250717
  Serious: Yes (Other)
  Sender: TRAVERE THERAPEUTICS
  Company Number: ES-BEH-2025209426

PATIENT
  Sex: Male

DRUGS (2)
  1. FILSPARI [Suspect]
     Active Substance: SPARSENTAN
     Indication: Product used for unknown indication
     Route: 065
  2. FILSPARI [Suspect]
     Active Substance: SPARSENTAN
     Dosage: 200 MG, QD
     Route: 065

REACTIONS (1)
  - Renal impairment [Unknown]
